FAERS Safety Report 16469484 (Version 1)
Quarter: 2019Q2

REPORT INFORMATION
  Report Type: Spontaneous
  Country: US (occurrence: US)
  Receive Date: 20190624
  Receipt Date: 20190624
  Transmission Date: 20190711
  Serious: No
  Sender: FDA-Public Use
  Company Number: US-BAYER-2019-118126

PATIENT
  Age: 66 Year
  Sex: Female

DRUGS (1)
  1. ESTRADIOL. [Suspect]
     Active Substance: ESTRADIOL
     Dosage: UNK
     Route: 062
     Dates: start: 201901

REACTIONS (5)
  - Incorrect dose administered by product [None]
  - Product adhesion issue [None]
  - Wrong technique in product usage process [None]
  - Night sweats [None]
  - Hot flush [None]

NARRATIVE: CASE EVENT DATE: 201901
